FAERS Safety Report 8539331-2 (Version None)
Quarter: 2012Q3

REPORT INFORMATION
  Report Type: 
  Country: None (occurrence: None)
  Receive Date: 20120726
  Receipt Date: 20110722
  Transmission Date: 20120928
  Serious: No
  Sender: FDA-Public Use
  Company Number: US-ASTRAZENECA-2011SE44094

PATIENT
  Age: 23 Year
  Sex: Male

DRUGS (1)
  1. SEROQUEL [Suspect]
     Indication: MENTAL RETARDATION
     Route: 048

REACTIONS (6)
  - DRUG DOSE OMISSION [None]
  - IMPULSIVE BEHAVIOUR [None]
  - ABNORMAL BEHAVIOUR [None]
  - AGITATION [None]
  - ILL-DEFINED DISORDER [None]
  - OFF LABEL USE [None]
